FAERS Safety Report 5106569-6 (Version None)
Quarter: 2006Q3

REPORT INFORMATION
  Report Type: 
  Country: None (occurrence: None)
  Receive Date: 20060918
  Receipt Date: 20060908
  Transmission Date: 20061208
  Serious: Yes (Other)
  Sender: FDA-Public Use
  Company Number: FR-GLAXOSMITHKLINE-B0438438A

PATIENT
  Sex: Male

DRUGS (1)
  1. ADARTREL [Suspect]
     Route: 048

REACTIONS (4)
  - BACK PAIN [None]
  - LOSS OF CONSCIOUSNESS [None]
  - MALAISE [None]
  - RIB FRACTURE [None]
